FAERS Safety Report 18488690 (Version 2)
Quarter: 2021Q4

REPORT INFORMATION
  Report Type: Spontaneous
  Country: US (occurrence: US)
  Receive Date: 20201110
  Receipt Date: 20211128
  Transmission Date: 20220304
  Serious: Yes (Other)
  Sender: FDA-Public Use
  Company Number: US-NAPPMUNDI-USA-2020-0154504

PATIENT
  Sex: Male

DRUGS (21)
  1. MS CONTIN [Suspect]
     Active Substance: MORPHINE SULFATE
     Indication: Pain
     Dosage: 15 MG, QID
     Route: 048
     Dates: start: 20111122, end: 201812
  2. OXYCODONE HYDROCHLORIDE [Suspect]
     Active Substance: OXYCODONE HYDROCHLORIDE
     Indication: Pain
     Dosage: 15 MG, QID
     Route: 048
     Dates: start: 20111122
  3. ACETAMINOPHEN\OXYCODONE HYDROCHLORIDE [Suspect]
     Active Substance: ACETAMINOPHEN\OXYCODONE HYDROCHLORIDE
     Indication: Pain
     Dosage: UNK
     Route: 048
  4. ACETAMINOPHEN\HYDROCODONE BITARTRATE [Suspect]
     Active Substance: ACETAMINOPHEN\HYDROCODONE BITARTRATE
     Indication: Pain
     Dosage: UNK
     Route: 048
  5. MORPHINE SULFATE [Suspect]
     Active Substance: MORPHINE SULFATE
     Indication: Pain
     Dosage: UNK
     Route: 048
  6. OXYCODONE HYDROCHLORIDE [Suspect]
     Active Substance: OXYCODONE HYDROCHLORIDE
     Indication: Product used for unknown indication
     Dosage: UNKNOWN
     Route: 048
  7. LIDODERM [Concomitant]
     Active Substance: LIDOCAINE
     Indication: Back pain
     Dosage: UNK
     Route: 061
     Dates: start: 20111122
  8. LIDODERM [Concomitant]
     Active Substance: LIDOCAINE
     Indication: Kyphoscoliosis
  9. LIDODERM [Concomitant]
     Active Substance: LIDOCAINE
     Indication: Intervertebral disc degeneration
  10. LIDODERM [Concomitant]
     Active Substance: LIDOCAINE
     Indication: Intervertebral disc protrusion
  11. BACLOFEN [Concomitant]
     Active Substance: BACLOFEN
     Indication: Back pain
     Dosage: 20 MG, QID
     Route: 048
     Dates: start: 20111122
  12. BACLOFEN [Concomitant]
     Active Substance: BACLOFEN
     Indication: Kyphoscoliosis
  13. BACLOFEN [Concomitant]
     Active Substance: BACLOFEN
     Indication: Intervertebral disc degeneration
  14. BACLOFEN [Concomitant]
     Active Substance: BACLOFEN
     Indication: Intervertebral disc protrusion
  15. IBUPROFEN [Concomitant]
     Active Substance: IBUPROFEN
     Indication: Back pain
     Dosage: 400 MG, Q4- 6H
     Route: 048
     Dates: start: 20111122
  16. IBUPROFEN [Concomitant]
     Active Substance: IBUPROFEN
     Indication: Kyphoscoliosis
  17. IBUPROFEN [Concomitant]
     Active Substance: IBUPROFEN
     Indication: Intervertebral disc degeneration
  18. IBUPROFEN [Concomitant]
     Active Substance: IBUPROFEN
     Indication: Intervertebral disc protrusion
  19. AMITRIPTYLINE [Concomitant]
     Active Substance: AMITRIPTYLINE
     Indication: Analgesic therapy
     Dosage: 1 TABLET, DAILY
     Route: 048
     Dates: start: 20200312
  20. GABAPENTIN [Concomitant]
     Active Substance: GABAPENTIN
     Indication: Analgesic therapy
     Dosage: 1 TABLET, TID
     Route: 048
     Dates: start: 20200312
  21. MELOXICAM [Concomitant]
     Active Substance: MELOXICAM
     Indication: Analgesic therapy
     Dosage: 1 TABLET, DAILY
     Route: 048
     Dates: start: 20200312

REACTIONS (4)
  - Overdose [Unknown]
  - Drug dependence [Unknown]
  - Mental impairment [Unknown]
  - Depression [Unknown]
